FAERS Safety Report 6170293-1 (Version None)
Quarter: 2009Q2

REPORT INFORMATION
  Report Type: 
  Country: None (occurrence: None)
  Receive Date: 20090427
  Receipt Date: 20090427
  Transmission Date: 20091009
  Serious: Yes (Other)
  Sender: FDA-Public Use
  Company Number: None

PATIENT
  Age: 59 Year
  Sex: Female
  Weight: 47.6277 kg

DRUGS (2)
  1. OMEPRAZOLE [Suspect]
     Indication: UPPER GASTROINTESTINAL HAEMORRHAGE
     Dosage: 20 MG PO BID
     Route: 048
     Dates: start: 20080826, end: 20080901
  2. ESOMEPRAZOLE MAGNESIUM [Suspect]
     Indication: UPPER GASTROINTESTINAL HAEMORRHAGE
     Dosage: 20 MG PO QD
     Route: 048
     Dates: start: 20080924, end: 20081201

REACTIONS (1)
  - HEPATIC ENZYME INCREASED [None]
